FAERS Safety Report 8484117-0 (Version None)
Quarter: 2012Q2

REPORT INFORMATION
  Report Type: 
  Country: None (occurrence: None)
  Receive Date: 20120402
  Receipt Date: 20111013
  Transmission Date: 20120825
  Serious: Yes (Hospitalization, Disabling, Other)
  Sender: FDA-Public Use
  Company Number: A-NJ2011-55517

PATIENT
  Age: 77 Year
  Sex: Female
  Weight: 88.9 kg

DRUGS (18)
  1. LASIX [Concomitant]
  2. HYDRALAZINE (HYDRALAZINE HYROCHLORIDE) [Concomitant]
  3. LISINOPRIL [Concomitant]
  4. CYMBALTA [Concomitant]
  5. MIRCO K (POTASSIUM CHLORIDE) [Concomitant]
  6. ZAROCOL (METOLAZONE) [Concomitant]
  7. IMDUR [Concomitant]
  8. SIMVASTATIN [Concomitant]
  9. ASPIRIN [Concomitant]
  10. POTASSIUM CHLORIDE [Concomitant]
  11. TRACLEER [Suspect]
     Indication: PULMONARY ARTERIAL HYPERTENSION
     Dosage: 125 MG, BID, ORAL; 62.5 MG, BID, ORAL
     Route: 048
     Dates: start: 20110101, end: 20111005
  12. TRACLEER [Suspect]
     Indication: PULMONARY ARTERIAL HYPERTENSION
     Dosage: 125 MG, BID, ORAL; 62.5 MG, BID, ORAL
     Route: 048
     Dates: start: 20110725, end: 20110101
  13. HYDROCODONE BITARTRATE [Concomitant]
  14. BYSTOLIC [Concomitant]
  15. LYRICA [Concomitant]
  16. VITAMIN B12 [Concomitant]
  17. DIGOXIN [Concomitant]
  18. PRADAXA (DABIGATRAN ETEXILATE MESILATE) [Concomitant]

REACTIONS (6)
  - ORTHOPNOEA [None]
  - CONCOMITANT DISEASE AGGRAVATED [None]
  - FLUID OVERLOAD [None]
  - DYSPNOEA EXERTIONAL [None]
  - CARDIAC FAILURE ACUTE [None]
  - WEIGHT INCREASED [None]
